FAERS Safety Report 18434342 (Version 1)
Quarter: 2020Q4

REPORT INFORMATION
  Report Type: Spontaneous
  Country: US (occurrence: US)
  Receive Date: 20201027
  Receipt Date: 20201027
  Transmission Date: 20210114
  Serious: Yes (Disabling, Other)
  Sender: FDA-Public Use
  Company Number: US-PURDUE-USA-2020-0171340

PATIENT
  Sex: Male

DRUGS (4)
  1. OXYCONTIN [Suspect]
     Active Substance: OXYCODONE HYDROCHLORIDE
     Indication: BACK INJURY
     Dosage: 80 MG, TID
     Route: 048
     Dates: start: 2002, end: 2013
  2. HYDROCODONE BITARTRATE AND ACETAMINOPHEN [Suspect]
     Active Substance: ACETAMINOPHEN\HYDROCODONE BITARTRATE
     Indication: BACK INJURY
     Dosage: UNK
     Route: 048
  3. TRAMADOL. [Suspect]
     Active Substance: TRAMADOL
     Indication: BACK INJURY
     Dosage: UNK
     Route: 048
  4. BUPRENORPHINE TRANSDERMAL PATCH (SIMILAR TO NDA 21-306) [Suspect]
     Active Substance: BUPRENORPHINE
     Indication: BACK INJURY
     Dosage: UNK
     Route: 062

REACTIONS (48)
  - Pain [Unknown]
  - Discomfort [Unknown]
  - Aggression [Unknown]
  - Urine output decreased [Unknown]
  - Musculoskeletal stiffness [Unknown]
  - Drug dependence [Unknown]
  - Major depression [Not Recovered/Not Resolved]
  - Somnolence [Unknown]
  - Persecutory delusion [Unknown]
  - Rash [Unknown]
  - Clumsiness [Unknown]
  - Feeling hot [Unknown]
  - Dyspepsia [Unknown]
  - Irregular breathing [Unknown]
  - Restlessness [Unknown]
  - Taste disorder [Unknown]
  - Flatulence [Unknown]
  - Pruritus [Unknown]
  - Gastrointestinal motility disorder [Unknown]
  - Weight increased [Unknown]
  - Mood altered [Unknown]
  - Deafness [Not Recovered/Not Resolved]
  - Libido decreased [Unknown]
  - Dental caries [Unknown]
  - Headache [Unknown]
  - Thirst [Unknown]
  - Abdominal pain upper [Unknown]
  - Hyperhidrosis [Unknown]
  - Anxiety [Not Recovered/Not Resolved]
  - Increased appetite [Unknown]
  - Asthenia [Unknown]
  - Rhinorrhoea [Unknown]
  - Vision blurred [Unknown]
  - Dizziness [Unknown]
  - Pollakiuria [Unknown]
  - Heart rate increased [Unknown]
  - Myalgia [Unknown]
  - Irritability [Unknown]
  - Altered state of consciousness [Unknown]
  - Abnormal dreams [Unknown]
  - Dysuria [Unknown]
  - Dry mouth [Unknown]
  - Confusional state [Unknown]
  - Crying [Unknown]
  - Erectile dysfunction [Unknown]
  - Hypoaesthesia [Unknown]
  - Amnesia [Unknown]
  - Constipation [Unknown]
